FAERS Safety Report 4375166-2 (Version None)
Quarter: 2004Q2

REPORT INFORMATION
  Report Type: 
  Country: None (occurrence: None)
  Receive Date: 20040603
  Receipt Date: 20040514
  Transmission Date: 20050107
  Serious: Yes (Life-Threatening, Hospitalization)
  Sender: FDA-Public Use
  Company Number: DE_040513573

PATIENT
  Age: 58 Year
  Sex: Female

DRUGS (4)
  1. ZYPREXA [Suspect]
     Indication: PSYCHOTIC DISORDER
     Dosage: 15 MG DAY
     Dates: end: 20040508
  2. HALOPERIDOL [Concomitant]
  3. DIAZEPAM [Concomitant]
  4. LUDIOMIL [Concomitant]

REACTIONS (11)
  - BRAIN DEATH [None]
  - BRAIN OEDEMA [None]
  - CHRONIC OBSTRUCTIVE AIRWAYS DISEASE [None]
  - CONVULSION [None]
  - DISEASE RECURRENCE [None]
  - DRUG LEVEL BELOW THERAPEUTIC [None]
  - INAPPROPRIATE ANTIDIURETIC HORMONE SECRETION [None]
  - POLYDIPSIA [None]
  - PSYCHOTIC DISORDER [None]
  - PUPIL FIXED [None]
  - TREATMENT NONCOMPLIANCE [None]
